FAERS Safety Report 17262325 (Version 1)
Quarter: 2019Q4

REPORT INFORMATION
  Report Type: Spontaneous
  Country: US (occurrence: US)
  Receive Date: 20191218
  Receipt Date: 20191218
  Transmission Date: 20200122
  Serious: No
  Sender: FDA-Public Use
  Company Number: None

PATIENT
  Age: 61 Year
  Sex: Female

DRUGS (12)
  1. VITAMIN [Concomitant]
     Active Substance: VITAMINS
  2. AZELASTINE. [Concomitant]
     Active Substance: AZELASTINE HYDROCHLORIDE
  3. TAB MINERALS [Concomitant]
  4. FLUTICASONE. [Concomitant]
     Active Substance: FLUTICASONE
  5. MULTI VITAMIN [Concomitant]
     Active Substance: VITAMINS
  6. OFLOXCCACIN [Concomitant]
  7. CIPRODEX [Concomitant]
     Active Substance: CIPROFLOXACIN HYDROCHLORIDE\DEXAMETHASONE
  8. SYNTHROID [Concomitant]
     Active Substance: LEVOTHYROXINE SODIUM
  9. URSODIOL. [Concomitant]
     Active Substance: URSODIOL
  10. OXYCODONE [Concomitant]
     Active Substance: OXYCODONE
  11. OCALIVA [Suspect]
     Active Substance: OBETICHOLIC ACID
     Indication: PRIMARY BILIARY CHOLANGITIS
     Route: 048
     Dates: start: 20180911
  12. METHYLPRED [Concomitant]
     Active Substance: METHYLPREDNISOLONE

REACTIONS (2)
  - Abdominal pain upper [None]
  - Nausea [None]

NARRATIVE: CASE EVENT DATE: 20191218
